FAERS Safety Report 17583620 (Version 1)
Quarter: 2020Q1

REPORT INFORMATION
  Report Type: Report from Study
  Country: None (occurrence: CO)
  Receive Date: 20200326
  Receipt Date: 20200326
  Transmission Date: 20200409
  Serious: Yes (Death, Hospitalization)
  Sender: FDA-Public Use
  Company Number: CO-ABBVIE-20K-036-3336898-00

PATIENT
  Age: 76 Year
  Sex: Female
  Weight: 55 kg

DRUGS (1)
  1. ZEMPLAR [Suspect]
     Active Substance: PARICALCITOL
     Indication: HYPERPARATHYROIDISM SECONDARY
     Dosage: POST- DIALYSIS
     Route: 042
     Dates: start: 20161021, end: 20200219

REACTIONS (6)
  - Respiratory distress [Fatal]
  - Stomach mass [Fatal]
  - Gastritis [Fatal]
  - Abdominal pain upper [Fatal]
  - Gastric cancer [Fatal]
  - Vomiting [Fatal]

NARRATIVE: CASE EVENT DATE: 202003
